FAERS Safety Report 8435301-3 (Version None)
Quarter: 2012Q2

REPORT INFORMATION
  Report Type: 
  Country: None (occurrence: None)
  Receive Date: 20120608
  Receipt Date: 20120608
  Transmission Date: 20120825
  Serious: Yes (Life-Threatening)
  Sender: FDA-Public Use
  Company Number: None

PATIENT
  Sex: Female

DRUGS (1)
  1. AVELOX [Suspect]
     Indication: INFECTION
     Dosage: 400MG DAILY IV
     Route: 042
     Dates: start: 20120604, end: 20120604

REACTIONS (1)
  - ANAPHYLACTIC REACTION [None]
